FAERS Safety Report 5670348-1 (Version None)
Quarter: 2008Q1

REPORT INFORMATION
  Report Type: 
  Country: None (occurrence: None)
  Receive Date: 20080318
  Receipt Date: 20080318
  Transmission Date: 20080703
  Serious: Yes (Other)
  Sender: FDA-Public Use
  Company Number: None

PATIENT
  Age: 34 Year
  Sex: Female
  Weight: 52.1637 kg

DRUGS (2)
  1. HEPARIN [Suspect]
     Indication: POTASSIUM CHLORIDE SENSITIVITY TEST ABNORMAL
     Dosage: ONCE INTRAVESICAL
     Route: 043
     Dates: start: 20071018, end: 20071018
  2. SYNTHROID [Concomitant]

REACTIONS (6)
  - ANXIETY [None]
  - DIZZINESS [None]
  - INSTILLATION SITE IRRITATION [None]
  - NAUSEA [None]
  - PHARMACEUTICAL PRODUCT COMPLAINT [None]
  - VERTIGO [None]
